FAERS Safety Report 5219238-9 (Version None)
Quarter: 2007Q1

REPORT INFORMATION
  Report Type: 
  Country: None (occurrence: None)
  Receive Date: 20070125
  Receipt Date: 20070115
  Transmission Date: 20070707
  Serious: Yes (Other)
  Sender: FDA-Public Use
  Company Number: PHFR2006GB03116

PATIENT
  Age: 69 Year
  Sex: Female
  Weight: 85 kg

DRUGS (4)
  1. ZOMETA [Suspect]
     Indication: MULTIPLE MYELOMA
     Route: 042
     Dates: start: 20020601, end: 20060601
  2. LEVOTHYROXINE SODIUM [Concomitant]
     Indication: HYPERTHYROIDISM
     Dosage: 75MG/DAY
     Dates: start: 19970201
  3. ATENOLOL [Concomitant]
     Indication: HYPERTENSION
     Dosage: 50MG/DAY
     Route: 048
     Dates: start: 19900101
  4. BENDROFLUAZIDE [Concomitant]
     Indication: HYPERTENSION
     Dosage: 2.5MG/DAY
     Route: 048
     Dates: start: 19900101

REACTIONS (3)
  - BONE DISORDER [None]
  - OSTEONECROSIS [None]
  - TOOTH EXTRACTION [None]
